APPROVED DRUG PRODUCT: CEFADROXIL
Active Ingredient: CEFADROXIL/CEFADROXIL HEMIHYDRATE
Strength: EQ 500MG BASE
Dosage Form/Route: CAPSULE;ORAL
Application: A065015 | Product #001
Applicant: RANBAXY LABORATORIES LTD
Approved: Jun 22, 1999 | RLD: No | RS: No | Type: DISCN